FAERS Safety Report 5211788-4 (Version None)
Quarter: 2007Q1

REPORT INFORMATION
  Report Type: 
  Country: None (occurrence: None)
  Receive Date: 20070118
  Receipt Date: 20070104
  Transmission Date: 20070707
  Serious: Yes (Death)
  Sender: FDA-Public Use
  Company Number: CA-ELI_LILLY_AND_COMPANY-CA200701000844

PATIENT
  Age: 81 Year
  Sex: Female

DRUGS (14)
  1. FORTEO [Suspect]
     Indication: OSTEOPOROSIS
     Dosage: 20 UG, DAILY (1/D)
     Route: 058
     Dates: start: 20060911
  2. VALSARTAN [Concomitant]
  3. ACETAMINOPHEN [Concomitant]
  4. PREDNISONE [Concomitant]
  5. DOMPERIDONE [Concomitant]
  6. LANOXIN [Concomitant]
  7. WARFARIN SODIUM [Concomitant]
  8. FOLIC ACID [Concomitant]
  9. AMIODARONE HCL [Concomitant]
  10. DOXEPIN HYDROCHLORIDE [Concomitant]
  11. SYNTHROID [Concomitant]
  12. CALCIUM CARBONATE [Concomitant]
  13. VITAMIN D [Concomitant]
  14. METHOTREXATE [Concomitant]

REACTIONS (1)
  - DEATH [None]
